FAERS Safety Report 7282480-X (Version None)
Quarter: 2011Q1

REPORT INFORMATION
  Report Type: 
  Country: None (occurrence: None)
  Receive Date: 20110126
  Receipt Date: 20110113
  Transmission Date: 20110831
  Serious: Yes (Death, Hospitalization)
  Sender: FDA-Public Use
  Company Number: DSA_44713_2011

PATIENT
  Age: 49 Year
  Sex: Male

DRUGS (1)
  1. DILTIAZEM [Suspect]
     Indication: PRODUCT USED FOR UNKNOWN INDICATION
     Dosage: NOT THE PRESCRIBED AMOUNT ORAL
     Route: 048

REACTIONS (12)
  - METABOLIC ACIDOSIS [None]
  - POISONING DELIBERATE [None]
  - OVERDOSE [None]
  - ATRIAL FIBRILLATION [None]
  - HYPOTENSION [None]
  - COMPLETED SUICIDE [None]
  - VENTRICULAR EXTRASYSTOLES [None]
  - MENTAL STATUS CHANGES [None]
  - BLOOD PRESSURE DECREASED [None]
  - RENAL FAILURE [None]
  - HYPERHIDROSIS [None]
  - NO THERAPEUTIC RESPONSE [None]
